FAERS Safety Report 9729738 (Version 1)
Quarter: 2013Q4

REPORT INFORMATION
  Report Type: Spontaneous
  Country: US (occurrence: US)
  Receive Date: 20131204
  Receipt Date: 20131204
  Transmission Date: 20140711
  Serious: No
  Sender: FDA-Public Use
  Company Number: US-GILEAD-2009-0022212

PATIENT
  Age: 54 Year
  Sex: Male
  Weight: 66.22 kg

DRUGS (12)
  1. LETAIRIS [Suspect]
     Indication: PULMONARY ARTERIAL HYPERTENSION
     Route: 048
     Dates: start: 20080714, end: 20090521
  2. REVATIO [Concomitant]
  3. WARFARIN [Concomitant]
  4. WARFARIN [Concomitant]
  5. LOVENOX [Concomitant]
  6. LASIX [Concomitant]
  7. METOLAZONE [Concomitant]
  8. ALDACTONE [Concomitant]
  9. COMBIVENT [Concomitant]
  10. ADVAIR 250-50 DISKUS [Concomitant]
  11. POTASIUM CHLOR [Concomitant]
  12. LOPROX 1% SHAMPOO [Concomitant]

REACTIONS (1)
  - Liver function test abnormal [Not Recovered/Not Resolved]
